FAERS Safety Report 14415657 (Version 1)
Quarter: 2018Q1

REPORT INFORMATION
  Report Type: Spontaneous
  Country: FR (occurrence: FR)
  Receive Date: 20180122
  Receipt Date: 20180122
  Transmission Date: 20180509
  Serious: Yes (Disabling)
  Sender: FDA-Public Use
  Company Number: FR-MERCK KGAA-2040448

PATIENT
  Age: 35 Year
  Sex: Female
  Weight: 50 kg

DRUGS (1)
  1. NOVOTHYROX [Suspect]
     Active Substance: LEVOTHYROXINE SODIUM
     Indication: HYPOTHYROIDISM
     Route: 048
     Dates: start: 20170621

REACTIONS (9)
  - Sleep disorder [Not Recovered/Not Resolved]
  - Fatigue [Not Recovered/Not Resolved]
  - Myalgia [Not Recovered/Not Resolved]
  - Xerosis [Not Recovered/Not Resolved]
  - Tendonitis [Not Recovered/Not Resolved]
  - Ligament sprain [Not Recovered/Not Resolved]
  - Muscle spasms [Not Recovered/Not Resolved]
  - Weight decreased [Not Recovered/Not Resolved]
  - Arthropathy [Not Recovered/Not Resolved]

NARRATIVE: CASE EVENT DATE: 20170705
